FAERS Safety Report 23098239 (Version 5)
Quarter: 2023Q4

REPORT INFORMATION
  Report Type: Report from Study
  Country: PT (occurrence: PT)
  Receive Date: 20231023
  Receipt Date: 20231226
  Transmission Date: 20240109
  Serious: Yes (Other)
  Sender: FDA-Public Use
  Company Number: PT-ABBVIE-5458934

PATIENT
  Age: 62 Year
  Sex: Male

DRUGS (15)
  1. CARBIDOPA\LEVODOPA [Suspect]
     Active Substance: CARBIDOPA\LEVODOPA
     Indication: Parkinson^s disease
     Dosage: 20 MG + 5 MG, MORN:14.1CC;MAINTE:3,6 CC/H;EXTRA:1,5 CC
     Route: 050
  2. CARBIDOPA\LEVODOPA [Suspect]
     Active Substance: CARBIDOPA\LEVODOPA
     Dosage: 20 MG + 5 MG, MORNIN:12CC;MAINTE:3,3 CC/H;EXTRA:1,5 CC
     Route: 050
     Dates: start: 20210826
  3. CARBIDOPA\LEVODOPA [Suspect]
     Active Substance: CARBIDOPA\LEVODOPA
     Dosage: 20 MG + 5 MG
     Route: 050
  4. BECE [Concomitant]
     Indication: Product used for unknown indication
     Dosage: 1 TABLET, START DATE TEXT: AFTER DUODOPA
     Route: 048
  5. AMANTADINE HYDROCHLORIDE [Concomitant]
     Active Substance: AMANTADINE HYDROCHLORIDE
     Indication: Product used for unknown indication
     Dosage: FREQUENCY TEXT: 7 AM AND LUNCH, START DATE TEXT: BEFORE DUODOPA
     Route: 048
  6. BUPROPION HYDROCHLORIDE [Concomitant]
     Active Substance: BUPROPION HYDROCHLORIDE
     Indication: Product used for unknown indication
     Dosage: FREQUENCY TEXT: 7AM, START DATE TEXT: BEFORE DUODOPA, FORM STRENGTH: 300 MG
     Route: 048
  7. ALPRAZOLAM [Concomitant]
     Active Substance: ALPRAZOLAM
     Indication: Product used for unknown indication
     Dosage: FORM STRENGTH: 1 MILLIGRAM?FREQUENCY TEXT: SOS?START DATE TEXT: BEFORE DUODOPA
     Route: 048
  8. CLOZAPINE [Concomitant]
     Active Substance: CLOZAPINE
     Indication: Product used for unknown indication
     Dosage: 1/2 IN MORNING+ LUNCH AND 1 AT BEDTIME, START DATE TEXT: BEFORE DUODOPA.?FORM STRENGTH: 100 MG
     Route: 048
  9. CLONAZEPAM [Concomitant]
     Active Substance: CLONAZEPAM
     Indication: Product used for unknown indication
     Dosage: 1 TABLET?FORM STRENGTH: 1 MILLIGRAM?START DATE TEXT: BEFORE DUODOPA
     Route: 048
  10. CLONAZEPAM [Concomitant]
     Active Substance: CLONAZEPAM
     Indication: Product used for unknown indication
     Dosage: 1 TABLET?FORM STRENGTH: 0.5 MILLIGRAM?FREQUENCY TEXT: AT BEDTIME
     Route: 048
  11. OLODATEROL HYDROCHLORIDE\TIOTROPIUM BROMIDE MONOHYDRATE [Concomitant]
     Active Substance: OLODATEROL HYDROCHLORIDE\TIOTROPIUM BROMIDE MONOHYDRATE
     Indication: Product used for unknown indication
     Dosage: 2.5+2.5 ?FREQUENCY TEXT: TWO INHALATIONS ONCE A DAY?START DATE TEXT: BEFORE DUODOPA
  12. BENSERAZIDE HYDROCHLORIDE\LEVODOPA [Concomitant]
     Active Substance: BENSERAZIDE HYDROCHLORIDE\LEVODOPA
     Indication: Product used for unknown indication
     Dosage: 2 TABLET, FREQUENCY TEXT: AT BEDTIME, START DATE TEXT: BEFORE DUODOPA,
     Route: 048
  13. TRAZODONE [Concomitant]
     Active Substance: TRAZODONE HYDROCHLORIDE
     Indication: Product used for unknown indication
     Dosage: 1 TABLET, FORM STRENGTH: 100 MILLIGRAM?FREQUENCY TEXT: AT BEDTIME?START DATE TEXT: BEFORE DUODOPA
  14. SERLIN [Concomitant]
     Indication: Product used for unknown indication
     Dosage: FORM STRENGTH: 50 MG, FREQUENCY TEXT: 2 TABLET IN THE MORNING?START DATE TEXT: BEFORE DUODOPA
  15. BUDESONIDE [Concomitant]
     Active Substance: BUDESONIDE
     Indication: Product used for unknown indication
     Dosage: 400.?FREQUENCY TEXT: ONE INHALATION TWICE A DAY?START DATE TEXT: BEFORE DUODOPA

REACTIONS (6)
  - Respiratory tract infection [Recovered/Resolved]
  - Delirium [Recovered/Resolved]
  - Productive cough [Not Recovered/Not Resolved]
  - Haemoglobin decreased [Not Recovered/Not Resolved]
  - Cough [Recovered/Resolved]
  - Wheezing [Recovered/Resolved]

NARRATIVE: CASE EVENT DATE: 20230919
